FAERS Safety Report 4463348-0 (Version None)
Quarter: 2004Q3

REPORT INFORMATION
  Report Type: 
  Country: None (occurrence: None)
  Receive Date: 20040930
  Receipt Date: 20040909
  Transmission Date: 20050211
  Serious: Yes (Death, Hospitalization)
  Sender: FDA-Public Use
  Company Number: US-BRISTOL-MYERS SQUIBB COMPANY-12697363

PATIENT
  Age: 58 Year
  Sex: Female
  Weight: 48 kg

DRUGS (9)
  1. PACLITAXEL [Suspect]
     Indication: BLADDER CANCER
     Dosage: THERAPY DATES: 14-APR-2004 TO 04-AUG-2004; DAY 1
     Route: 042
     Dates: start: 20040804, end: 20040804
  2. CARBOPLATIN [Suspect]
     Indication: BLADDER CANCER
     Dosage: THERAPY DATES: 14-APR-2004 TO 04-AUG-2004; DAY 1 AUC=5
     Route: 042
     Dates: start: 20040804, end: 20040804
  3. GEMCITABINE [Suspect]
     Indication: BLADDER CANCER
     Route: 042
     Dates: start: 20040811, end: 20040811
  4. KLONOPIN [Concomitant]
  5. COMPAZINE [Concomitant]
  6. VICODIN [Concomitant]
  7. SENOKOT [Concomitant]
  8. KYTRIL [Concomitant]
  9. BENADRYL [Concomitant]

REACTIONS (25)
  - ALANINE AMINOTRANSFERASE INCREASED [None]
  - ASPARTATE AMINOTRANSFERASE INCREASED [None]
  - BACTERIA URINE IDENTIFIED [None]
  - BLOOD PRESSURE INCREASED [None]
  - BLOOD SODIUM DECREASED [None]
  - BLOOD UREA INCREASED [None]
  - BLOOD URINE [None]
  - CEREBRAL ISCHAEMIA [None]
  - CHILLS [None]
  - COMA [None]
  - HAEMATOCRIT DECREASED [None]
  - HAEMOGLOBIN DECREASED [None]
  - HAEMORRHAGE INTRACRANIAL [None]
  - MUSCULOSKELETAL DISCOMFORT [None]
  - PALLOR [None]
  - PLATELET COUNT DECREASED [None]
  - PROTEIN URINE PRESENT [None]
  - PYREXIA [None]
  - REFUSAL OF TREATMENT BY PATIENT [None]
  - SINUS PAIN [None]
  - URINARY CASTS [None]
  - URINARY SEDIMENT PRESENT [None]
  - WHITE BLOOD CELL COUNT DECREASED [None]
  - WHITE BLOOD CELL COUNT INCREASED [None]
  - WHITE BLOOD CELLS URINE POSITIVE [None]
